FAERS Safety Report 11231192 (Version 4)
Quarter: 2015Q3

REPORT INFORMATION
  Report Type: Report from Study
  Country: DE (occurrence: DE)
  Receive Date: 20150701
  Receipt Date: 20150713
  Transmission Date: 20151125
  Serious: Yes (Death, Life-Threatening)
  Sender: FDA-Public Use
  Company Number: DE-EISAI MEDICAL RESEARCH-EC-2015-007912

PATIENT
  Age: 71 Year
  Sex: Male
  Weight: 67.7 kg

DRUGS (7)
  1. PANTOZOL [Concomitant]
     Active Substance: PANTOPRAZOLE SODIUM
  2. CANDESARTAN RATIOPHARM [Concomitant]
  3. NOVALGIN [Concomitant]
     Active Substance: METAMIZOLE SODIUM
  4. LENVATINIB [Suspect]
     Active Substance: LENVATINIB
     Indication: HEPATOCELLULAR CARCINOMA
     Route: 048
     Dates: start: 20150623, end: 201506
  5. PALLADON [Concomitant]
     Active Substance: HYDROMORPHONE
  6. MOVICOL [Concomitant]
     Active Substance: POLYETHYLENE GLYCOL 3350\POTASSIUM CHLORIDE\SODIUM BICARBONATE\SODIUM CHLORIDE
  7. TRAMAL [Concomitant]
     Active Substance: TRAMADOL

REACTIONS (2)
  - Hepatic enzyme increased [Not Recovered/Not Resolved]
  - Sepsis [Fatal]

NARRATIVE: CASE EVENT DATE: 20150627
